FAERS Safety Report 8953103 (Version 2)
Quarter: 2013Q1

REPORT INFORMATION
  Report Type: Spontaneous
  Country: US (occurrence: US)
  Receive Date: 20121205
  Receipt Date: 20130123
  Transmission Date: 20140127
  Serious: No
  Sender: FDA-Public Use
  Company Number: US-PFIZER INC-2012304297

PATIENT
  Age: 33 Year
  Sex: Female
  Weight: 49 kg

DRUGS (2)
  1. ADVIL [Suspect]
     Indication: HEADACHE
     Dosage: 200 MG, AS NEEDED
     Route: 048
     Dates: end: 20121203
  2. ADVIL [Suspect]
     Dosage: UNK, AS NEEDED
     Route: 048
     Dates: end: 20121203

REACTIONS (3)
  - Poor quality drug administered [Unknown]
  - Headache [Not Recovered/Not Resolved]
  - Product odour abnormal [Not Recovered/Not Resolved]
